FAERS Safety Report 9800027 (Version 3)
Quarter: 2015Q3

REPORT INFORMATION
  Report Type: Spontaneous
  Country: US (occurrence: US)
  Receive Date: 20140106
  Receipt Date: 20150806
  Transmission Date: 20151125
  Serious: No
  Sender: FDA-Public Use
  Company Number: US-GILEAD-2010-0030849

PATIENT
  Age: 62 Year
  Sex: Female
  Weight: 97.52 kg

DRUGS (16)
  1. FUROSEMIDE. [Concomitant]
     Active Substance: FUROSEMIDE
  2. SLO-NIACIN [Concomitant]
     Active Substance: DIETARY SUPPLEMENT
  3. FLEXERIL [Concomitant]
     Active Substance: CYCLOBENZAPRINE HYDROCHLORIDE
  4. ISOSORBIDE. [Concomitant]
     Active Substance: ISOSORBIDE
  5. LEVOTHYROXINE. [Concomitant]
     Active Substance: LEVOTHYROXINE
  6. VENOFER [Concomitant]
     Active Substance: IRON SUCROSE
  7. LETAIRIS [Suspect]
     Active Substance: AMBRISENTAN
     Indication: PULMONARY ARTERIAL HYPERTENSION
     Route: 048
     Dates: start: 20100719
  8. COZAAR [Concomitant]
     Active Substance: LOSARTAN POTASSIUM
  9. HYDRALAZINE [Concomitant]
     Active Substance: HYDRALAZINE HYDROCHLORIDE
  10. HUMULIN L [Concomitant]
     Active Substance: INSULIN HUMAN
  11. HEPARIN [Concomitant]
     Active Substance: HEPARIN SODIUM
  12. ASPIRIN. [Concomitant]
     Active Substance: ASPIRIN
  13. PRILOSEC [Concomitant]
     Active Substance: OMEPRAZOLE MAGNESIUM
  14. SIMVASTATIN. [Concomitant]
     Active Substance: SIMVASTATIN
  15. NEPHRO-VITE [Concomitant]
  16. ATENOLOL. [Concomitant]
     Active Substance: ATENOLOL

REACTIONS (2)
  - Palpitations [Unknown]
  - Heart rate increased [Unknown]
